FAERS Safety Report 8202581-9 (Version None)
Quarter: 2012Q1

REPORT INFORMATION
  Report Type: 
  Country: None (occurrence: None)
  Receive Date: 20120312
  Receipt Date: 20120305
  Transmission Date: 20120608
  Serious: Yes (Other)
  Sender: FDA-Public Use
  Company Number: US-ABBOTT-12P-163-0912042-00

PATIENT
  Sex: Male
  Weight: 77.18 kg

DRUGS (5)
  1. STEROID EYE DROPS [Suspect]
     Indication: EYE DISORDER
  2. HUMIRA [Suspect]
     Indication: JUVENILE ARTHRITIS
     Route: 058
     Dates: start: 20080101
  3. METHOTREXATE [Concomitant]
     Indication: JUVENILE ARTHRITIS
  4. HUMIRA [Suspect]
     Indication: UVEITIS
  5. ENBREL [Suspect]
     Indication: JUVENILE ARTHRITIS
     Dates: end: 20080101

REACTIONS (4)
  - EYE DISORDER [None]
  - CATARACT [None]
  - OFF LABEL USE [None]
  - VISUAL IMPAIRMENT [None]
